FAERS Safety Report 16995438 (Version 3)
Quarter: 2020Q1

REPORT INFORMATION
  Report Type: Spontaneous
  Country: JP (occurrence: JP)
  Receive Date: 20191105
  Receipt Date: 20200325
  Transmission Date: 20200409
  Serious: Yes (Other)
  Sender: FDA-Public Use
  Company Number: NVSJ2019JP001765

PATIENT
  Age: 0 Day
  Sex: Male
  Weight: 2.3 kg

DRUGS (17)
  1. REVOLADE TAB [Suspect]
     Active Substance: ELTROMBOPAG
     Indication: EXPOSURE VIA BREAST MILK
     Dosage: 50 MG, UNK
     Route: 064
  2. REVOLADE TAB [Suspect]
     Active Substance: ELTROMBOPAG
     Dosage: 50 UNK
     Route: 064
     Dates: start: 201809, end: 20190115
  3. REVOLADE TAB [Suspect]
     Active Substance: ELTROMBOPAG
     Dosage: 75 MG, UNK
     Route: 063
  4. FILGRASTIM [Concomitant]
     Active Substance: FILGRASTIM
     Indication: EXPOSURE VIA BREAST MILK
  5. FILGRASTIM [Concomitant]
     Active Substance: FILGRASTIM
     Indication: FOETAL EXPOSURE DURING PREGNANCY
     Dosage: 75 UG
     Route: 042
  6. REVOLADE TAB [Suspect]
     Active Substance: ELTROMBOPAG
     Dosage: 100 MG, UNK
     Route: 064
     Dates: start: 201804, end: 201807
  7. ANTITHYMOCYTE IMMUNOGLOBULIN (RABBIT) [Concomitant]
     Active Substance: LAPINE T-LYMPHOCYTE IMMUNE GLOBULIN
     Indication: FOETAL EXPOSURE DURING PREGNANCY
     Dosage: 2.5 MG/KG, UNK
     Route: 065
  8. REVOLADE TAB [Suspect]
     Active Substance: ELTROMBOPAG
     Dosage: 75 MG, UNK
     Route: 064
     Dates: start: 201807, end: 201809
  9. REVOLADE TAB [Suspect]
     Active Substance: ELTROMBOPAG
     Dosage: 50 MG
     Route: 063
  10. REVOLADE TAB [Suspect]
     Active Substance: ELTROMBOPAG
     Dosage: 12.5 MG
     Route: 063
     Dates: end: 20200114
  11. NEORAL [Suspect]
     Active Substance: CYCLOSPORINE
     Indication: EXPOSURE VIA BREAST MILK
     Dosage: 6 MG/KG
     Route: 064
  12. ANTITHYMOCYTE IMMUNOGLOBULIN (RABBIT) [Concomitant]
     Active Substance: LAPINE T-LYMPHOCYTE IMMUNE GLOBULIN
     Indication: EXPOSURE VIA BREAST MILK
  13. REVOLADE TAB [Suspect]
     Active Substance: ELTROMBOPAG
     Dosage: 50 MG, UNK
     Route: 064
     Dates: start: 20190206
  14. NEORAL [Suspect]
     Active Substance: CYCLOSPORINE
     Dosage: 100 MG
     Route: 048
  15. REVOLADE TAB [Suspect]
     Active Substance: ELTROMBOPAG
     Indication: FOETAL EXPOSURE DURING PREGNANCY
     Dosage: 75 MG,UNK
     Route: 064
     Dates: start: 20171207
  16. REVOLADE TAB [Suspect]
     Active Substance: ELTROMBOPAG
     Dosage: 75 MG, UNK
     Route: 064
  17. NEORAL [Suspect]
     Active Substance: CYCLOSPORINE
     Indication: FOETAL EXPOSURE DURING PREGNANCY
     Dosage: 6 MG/KG
     Route: 064

REACTIONS (5)
  - Low birth weight baby [Unknown]
  - Exposure via breast milk [Unknown]
  - Platelet count increased [Unknown]
  - Neonatal asphyxia [Recovered/Resolved]
  - Foetal exposure during pregnancy [Unknown]

NARRATIVE: CASE EVENT DATE: 20190903
